FAERS Safety Report 17363880 (Version 1)
Quarter: 2020Q1

REPORT INFORMATION
  Report Type: Report from Study
  Country: US (occurrence: US)
  Receive Date: 20200203
  Receipt Date: 20200203
  Transmission Date: 20200409
  Serious: Yes (Death)
  Sender: FDA-Public Use
  Company Number: US-TAKEDA-2019TUS061800

PATIENT
  Sex: Male

DRUGS (1)
  1. PONATINIB [Suspect]
     Active Substance: PONATINIB
     Indication: LUNG NEOPLASM MALIGNANT
     Dosage: 45 MILLIGRAM, QD
     Route: 048

REACTIONS (2)
  - Death [Fatal]
  - Off label use [Unknown]
